FAERS Safety Report 10656717 (Version 2)
Quarter: 2015Q1

REPORT INFORMATION
  Report Type: Spontaneous
  Country: FR (occurrence: FR)
  Receive Date: 20141217
  Receipt Date: 20150113
  Transmission Date: 20150720
  Serious: Yes (Disabling, Other)
  Sender: FDA-Public Use
  Company Number: PHHY2014FR160659

PATIENT
  Age: 28 Year
  Sex: Male

DRUGS (1)
  1. AMOXICILLIN SANDOZ [Suspect]
     Active Substance: AMOXICILLIN
     Indication: PRODUCT USED FOR UNKNOWN INDICATION
     Route: 065

REACTIONS (12)
  - Social avoidant behaviour [Unknown]
  - Respiratory disorder [Unknown]
  - Panic attack [Unknown]
  - Anxiety [Unknown]
  - Vertigo [Not Recovered/Not Resolved]
  - Rash macular [Unknown]
  - Depression [Unknown]
  - Feeling drunk [Unknown]
  - Hypersensitivity [Unknown]
  - Eating disorder [Unknown]
  - Body mass index decreased [Unknown]
  - Balance disorder [Not Recovered/Not Resolved]

NARRATIVE: CASE EVENT DATE: 2007
